FAERS Safety Report 6454385-5 (Version None)
Quarter: 2009Q4

REPORT INFORMATION
  Report Type: 
  Country: None (occurrence: None)
  Receive Date: 20091117
  Receipt Date: 20091102
  Transmission Date: 20100525
  Serious: Yes (Other)
  Sender: FDA-Public Use
  Company Number: AUR-APL-2009-01166

PATIENT
  Age: 38 Year
  Sex: Male

DRUGS (5)
  1. GABAPENTIN [Suspect]
     Indication: ANXIETY
     Dosage: 2.4-4.8GM, DAILY,
  2. GABAPENTIN [Suspect]
     Indication: HEADACHE
     Dosage: 2.4-4.8GM, DAILY,
  3. ATENOLOL [Concomitant]
  4. BUSPIRONE HCL [Concomitant]
  5. BUPROPION HCL [Concomitant]

REACTIONS (13)
  - ALCOHOL POISONING [None]
  - ALCOHOLISM [None]
  - AMNESIA [None]
  - ANXIETY [None]
  - COGNITIVE DISORDER [None]
  - CONFUSIONAL STATE [None]
  - DELIRIUM [None]
  - DISTURBANCE IN ATTENTION [None]
  - DRUG DEPENDENCE [None]
  - HEADACHE [None]
  - IMPAIRED WORK ABILITY [None]
  - INTENTIONAL DRUG MISUSE [None]
  - PARAESTHESIA [None]
